FAERS Safety Report 5661029-9 (Version None)
Quarter: 2008Q1

REPORT INFORMATION
  Report Type: 
  Country: None (occurrence: None)
  Receive Date: 20080311
  Receipt Date: 20080215
  Transmission Date: 20080703
  Serious: No
  Sender: FDA-Public Use
  Company Number: US-BOEHRINGER INGELHEIM GMBH, GERMANY-2008-BP-02443BP

PATIENT
  Sex: Female

DRUGS (7)
  1. SPIRIVA [Suspect]
     Indication: EMPHYSEMA
     Route: 055
     Dates: start: 20080101
  2. SPIRIVA [Suspect]
     Indication: CHRONIC OBSTRUCTIVE PULMONARY DISEASE
  3. DUONEB [Suspect]
     Indication: CHRONIC OBSTRUCTIVE PULMONARY DISEASE
     Dates: start: 20060101, end: 20080101
  4. DUONEB [Suspect]
     Indication: EMPHYSEMA
  5. ALBUTEROL [Suspect]
     Dates: start: 20080101, end: 20080213
  6. XOPENEX [Suspect]
     Dates: start: 20080213
  7. ADVAIR DISKUS 100/50 [Concomitant]
     Dates: start: 20080101

REACTIONS (3)
  - DRUG INEFFECTIVE [None]
  - DYSPNOEA [None]
  - NERVOUSNESS [None]
